FAERS Safety Report 25379379 (Version 1)
Quarter: 2025Q2

REPORT INFORMATION
  Report Type: Spontaneous
  Country: JP (occurrence: JP)
  Receive Date: 20250530
  Receipt Date: 20250530
  Transmission Date: 20250716
  Serious: Yes (Hospitalization, Other)
  Sender: RANBAXY
  Company Number: JP-SUNPHARMA-2025R1-508355AA

PATIENT
  Age: 31 Year
  Sex: Female
  Weight: 59.3 kg

DRUGS (8)
  1. TEGRETOL [Suspect]
     Active Substance: CARBAMAZEPINE
     Indication: Schizophrenia
     Dosage: 100 MILLIGRAM, BID
     Route: 048
     Dates: start: 20250324, end: 20250430
  2. TRIAZOLAM Tablet 0.25 mg [Nichi-Iko] [Concomitant]
     Indication: Product used for unknown indication
     Route: 065
  3. BROMAZEPAM Tablets 3 mg [SAND] [Concomitant]
     Indication: Product used for unknown indication
     Route: 065
  4. SULPIRIDE Tablets 50 mg [AMEL] [Concomitant]
     Indication: Product used for unknown indication
     Route: 065
  5. TERBINAFINE HYDROCHLORIDE Cream 1 % [SAWAI] [Concomitant]
     Indication: Product used for unknown indication
     Route: 065
  6. FLUNITRAZEPAM Tablets 1 mg [AMEL] [Concomitant]
     Indication: Product used for unknown indication
     Route: 065
  7. LITHIUM CARBONATE Tablets 200 mg [TAISHO] [Concomitant]
     Indication: Product used for unknown indication
     Route: 065
  8. CALONAL Tablets 300 [Concomitant]
     Indication: Product used for unknown indication
     Route: 065

REACTIONS (1)
  - Drug reaction with eosinophilia and systemic symptoms [Recovering/Resolving]

NARRATIVE: CASE EVENT DATE: 20250428
